FAERS Safety Report 9092757 (Version 4)
Quarter: 2014Q2

REPORT INFORMATION
  Report Type: Spontaneous
  Country: US (occurrence: US)
  Receive Date: 20130201
  Receipt Date: 20140515
  Transmission Date: 20141212
  Serious: Yes (Death, Hospitalization, Other)
  Sender: FDA-Public Use
  Company Number: US-JNJFOC-20130111284

PATIENT
  Age: 39 Year
  Sex: Male

DRUGS (15)
  1. INVEGA SUSTENNA [Suspect]
     Indication: SCHIZOPHRENIA, PARANOID TYPE
     Route: 030
  2. INVEGA SUSTENNA [Suspect]
     Indication: SCHIZOPHRENIA, PARANOID TYPE
     Route: 030
     Dates: start: 20120223, end: 201202
  3. INVEGA SUSTENNA [Suspect]
     Indication: SCHIZOPHRENIA, PARANOID TYPE
     Route: 030
     Dates: start: 20120216, end: 201202
  4. INVEGA [Suspect]
     Indication: SCHIZOPHRENIA, PARANOID TYPE
     Route: 048
     Dates: start: 20120210, end: 20120220
  5. INVEGA [Suspect]
     Indication: SCHIZOPHRENIA, PARANOID TYPE
     Route: 048
     Dates: start: 20120209
  6. NAVANE [Suspect]
     Indication: PRODUCT USED FOR UNKNOWN INDICATION
     Dosage: BEDTIME
     Route: 048
     Dates: start: 20120203
  7. NAVANE [Suspect]
     Indication: PRODUCT USED FOR UNKNOWN INDICATION
     Route: 048
     Dates: start: 20120306, end: 20120319
  8. NAVANE [Suspect]
     Indication: PRODUCT USED FOR UNKNOWN INDICATION
     Route: 048
     Dates: start: 20120204, end: 20120207
  9. GEODON [Suspect]
     Indication: MENTAL DISORDER
     Dosage: AS NECESSARY
     Route: 030
     Dates: start: 20120216
  10. ZYPREXA [Suspect]
     Indication: ANXIETY
     Route: 048
     Dates: start: 20120314
  11. ZYPREXA [Suspect]
     Indication: ANXIETY
     Route: 048
     Dates: start: 20120316, end: 20120317
  12. ZYPREXA [Suspect]
     Indication: AGITATION
     Route: 048
     Dates: start: 20120316, end: 20120317
  13. ZYPREXA [Suspect]
     Indication: AGITATION
     Route: 048
     Dates: start: 20120314
  14. TYLENOL [Concomitant]
     Indication: HEADACHE
     Dosage: OVER 47 DAY HOSPITALIZATION
     Route: 048
  15. VITAMIN D [Concomitant]
     Dosage: EVERY MORNING
     Route: 048

REACTIONS (9)
  - Completed suicide [Fatal]
  - Depression [Not Recovered/Not Resolved]
  - Anxiety [Not Recovered/Not Resolved]
  - Panic disorder [Not Recovered/Not Resolved]
  - Anosognosia [Unknown]
  - Drug ineffective [Unknown]
  - Drug dose omission [Unknown]
  - Decreased appetite [Not Recovered/Not Resolved]
  - Therapy cessation [Not Recovered/Not Resolved]
